FAERS Safety Report 4443684-4 (Version None)
Quarter: 2004Q3

REPORT INFORMATION
  Report Type: 
  Country: None (occurrence: None)
  Receive Date: 20040908
  Receipt Date: 20040831
  Transmission Date: 20050211
  Serious: Yes (Life-Threatening, Hospitalization)
  Sender: FDA-Public Use
  Company Number: JP-ROCHE-378976

PATIENT
  Age: 2 Year
  Sex: Male

DRUGS (1)
  1. NAIXAN [Suspect]
     Route: 048
     Dates: start: 20040202, end: 20040207

REACTIONS (2)
  - FEBRILE CONVULSION [None]
  - HISTIOCYTOSIS HAEMATOPHAGIC [None]
